FAERS Safety Report 15124399 (Version 1)
Quarter: 2018Q3

REPORT INFORMATION
  Report Type: Report from Study
  Country: None (occurrence: US)
  Receive Date: 20180710
  Receipt Date: 20180710
  Transmission Date: 20181010
  Serious: Yes (Other)
  Sender: FDA-Public Use
  Company Number: US-ABBVIE-18K-163-2413243-00

PATIENT
  Age: 71 Year
  Sex: Female

DRUGS (1)
  1. HUMIRA [Suspect]
     Active Substance: ADALIMUMAB
     Indication: PSORIATIC ARTHROPATHY
     Route: 058
     Dates: end: 2018

REACTIONS (5)
  - Gastric haemorrhage [Not Recovered/Not Resolved]
  - Faeces discoloured [Unknown]
  - Haematemesis [Unknown]
  - Back pain [Not Recovered/Not Resolved]
  - Melaena [Unknown]

NARRATIVE: CASE EVENT DATE: 201806
